FAERS Safety Report 12964539 (Version 1)
Quarter: 2016Q4

REPORT INFORMATION
  Report Type: Report from Study
  Country: CA (occurrence: CA)
  Receive Date: 20161122
  Receipt Date: 20161122
  Transmission Date: 20170207
  Serious: Yes (Other)
  Sender: FDA-Public Use
  Company Number: CA-JNJFOC-20161120609

PATIENT
  Age: 17 Year
  Sex: Male
  Weight: 98 kg

DRUGS (1)
  1. REMICADE [Suspect]
     Active Substance: INFLIXIMAB
     Indication: CROHN^S DISEASE
     Route: 042
     Dates: start: 200910

REACTIONS (4)
  - Off label use [Unknown]
  - Anal abscess [Unknown]
  - Product use issue [Unknown]
  - Fistula [Unknown]

NARRATIVE: CASE EVENT DATE: 200910
